FAERS Safety Report 16646820 (Version 1)
Quarter: 2019Q3

REPORT INFORMATION
  Report Type: Spontaneous
  Country: ES (occurrence: ES)
  Receive Date: 20190730
  Receipt Date: 20190730
  Transmission Date: 20191004
  Serious: Yes (Other)
  Sender: FDA-Public Use
  Company Number: ES-PFIZER INC-2019318724

PATIENT
  Age: 66 Year
  Sex: Male

DRUGS (5)
  1. MORPHINE SULFATE. [Suspect]
     Active Substance: MORPHINE SULFATE
     Indication: BREAKTHROUGH PAIN
     Dosage: 10 MG, UNK (4-5 MORPHINE RESCUES)
     Dates: start: 201701
  2. BUPRENORPHINE. [Suspect]
     Active Substance: BUPRENORPHINE
     Indication: BONE PAIN
     Dosage: UNK
     Dates: start: 201701
  3. NALOXONE HCL;OXYCODONE HCL [Suspect]
     Active Substance: NALOXONE HYDROCHLORIDE\OXYCODONE HYDROCHLORIDE
     Indication: BONE PAIN
     Dosage: 10+5 MG, 2X/DAY
     Dates: start: 201701
  4. PREGABALIN. [Suspect]
     Active Substance: PREGABALIN
     Indication: BONE PAIN
     Dosage: 150 MG, 2X/DAY
     Dates: start: 201701
  5. IBUPROFEN. [Suspect]
     Active Substance: IBUPROFEN
     Indication: BONE PAIN
     Dosage: 600 MG, 2X/DAY
     Dates: start: 201701

REACTIONS (5)
  - Product use in unapproved indication [Unknown]
  - Disorientation [Recovering/Resolving]
  - Somnolence [Recovering/Resolving]
  - Neurotoxicity [Recovering/Resolving]
  - Off label use [Unknown]

NARRATIVE: CASE EVENT DATE: 201701
